FAERS Safety Report 4332902-9 (Version None)
Quarter: 2004Q1

REPORT INFORMATION
  Report Type: 
  Country: None (occurrence: None)
  Receive Date: 20040330
  Receipt Date: 20040319
  Transmission Date: 20041129
  Serious: Yes (Death)
  Sender: FDA-Public Use
  Company Number: US-JNJFOC-20031201527

PATIENT
  Age: 44 Year
  Sex: Male

DRUGS (1)
  1. DURAGESIC [Suspect]
     Indication: CANCER PAIN
     Dosage: 125 UG/HR, 1 IN 72 HOUR, TRANDERMAL
     Route: 062
     Dates: start: 20031101, end: 20031124

REACTIONS (1)
  - DEATH [None]
